FAERS Safety Report 6386788-1 (Version None)
Quarter: 2009Q4

REPORT INFORMATION
  Report Type: 
  Country: None (occurrence: None)
  Receive Date: 20091002
  Receipt Date: 20090925
  Transmission Date: 20100525
  Serious: Yes (Other)
  Sender: FDA-Public Use
  Company Number: B0530382A

PATIENT
  Sex: Female
  Weight: 54 kg

DRUGS (3)
  1. LAPATINIB [Suspect]
     Indication: BREAST CANCER
     Dosage: 1000MGD PER DAY
     Route: 048
     Dates: start: 20080128
  2. PACLITAXEL [Suspect]
     Indication: BREAST CANCER
     Route: 042
     Dates: start: 20080128
  3. TRASTUZUMAB [Suspect]
     Indication: BREAST CANCER
     Route: 042
     Dates: start: 20080128

REACTIONS (4)
  - CONDUCTION DISORDER [None]
  - ELECTROCARDIOGRAM ST SEGMENT DEPRESSION [None]
  - GENERALISED OEDEMA [None]
  - MYOCARDIAL INFARCTION [None]
